FAERS Safety Report 21549415 (Version 3)
Quarter: 2022Q4

REPORT INFORMATION
  Report Type: Spontaneous
  Country: US (occurrence: US)
  Receive Date: 20221103
  Receipt Date: 20221215
  Transmission Date: 20230113
  Serious: No
  Sender: FDA-Public Use
  Company Number: US-PFIZER INC-202201271330

PATIENT
  Sex: Female

DRUGS (1)
  1. NALBUPHINE HYDROCHLORIDE [Suspect]
     Active Substance: NALBUPHINE HYDROCHLORIDE
     Dosage: UNK
     Dates: end: 202207

REACTIONS (3)
  - Skin laceration [Unknown]
  - Product package associated injury [Unknown]
  - Product packaging issue [Unknown]
